FAERS Safety Report 14717547 (Version 4)
Quarter: 2018Q4

REPORT INFORMATION
  Report Type: Spontaneous
  Country: US (occurrence: US)
  Receive Date: 20180404
  Receipt Date: 20181102
  Transmission Date: 20190204
  Serious: No
  Sender: FDA-Public Use
  Company Number: US-SA-2018SA011649

PATIENT
  Age: 21 Year
  Sex: Male

DRUGS (5)
  1. DUPIXENT [Suspect]
     Active Substance: DUPILUMAB
     Indication: DERMATITIS ATOPIC
     Dosage: 300 MG,QOW
     Route: 058
     Dates: start: 20171122, end: 20180809
  2. DESONIDE. [Concomitant]
     Active Substance: DESONIDE
     Indication: DERMATITIS ATOPIC
     Dosage: .05 %,UNK
     Route: 065
     Dates: start: 20171106
  3. CLOBETASOL [Concomitant]
     Active Substance: CLOBETASOL
     Indication: DERMATITIS ATOPIC
     Dosage: .05 %,UNK
     Route: 065
     Dates: start: 20171130
  4. HYDROCORTISONE. [Concomitant]
     Active Substance: HYDROCORTISONE
     Indication: DERMATITIS ATOPIC
     Dosage: 2.5 %,UNK
     Route: 065
     Dates: start: 20171128
  5. MUPIROCIN. [Concomitant]
     Active Substance: MUPIROCIN
     Indication: IMPETIGO
     Dosage: 2 %,UNK
     Route: 065
     Dates: start: 20171009

REACTIONS (5)
  - Unevaluable event [Unknown]
  - Insomnia [Unknown]
  - Condition aggravated [Unknown]
  - Conjunctivitis allergic [Unknown]
  - Blepharitis [Unknown]

NARRATIVE: CASE EVENT DATE: 20180101
